FAERS Safety Report 6245807-3 (Version None)
Quarter: 2009Q2

REPORT INFORMATION
  Report Type: 
  Country: None (occurrence: None)
  Receive Date: 20090624
  Receipt Date: 20090612
  Transmission Date: 20091009
  Serious: Yes (Death)
  Sender: FDA-Public Use
  Company Number: 2009-02359

PATIENT
  Age: 51 Year
  Sex: Male

DRUGS (3)
  1. VELCADE [Suspect]
     Indication: MULTIPLE MYELOMA
  2. DOXIL [Suspect]
     Indication: MULTIPLE MYELOMA
  3. DEXAMETHASONE TAB [Suspect]
     Indication: MULTIPLE MYELOMA

REACTIONS (1)
  - VENTRICULAR TACHYCARDIA [None]
